FAERS Safety Report 8325592-1 (Version None)
Quarter: 2012Q2

REPORT INFORMATION
  Report Type: 
  Country: None (occurrence: None)
  Receive Date: 20120501
  Receipt Date: 20100506
  Transmission Date: 20120825
  Serious: No
  Sender: FDA-Public Use
  Company Number: US-TEVA-2010002643

PATIENT
  Sex: Female
  Weight: 86.26 kg

DRUGS (1)
  1. NUVIGIL [Suspect]
     Indication: CIRCADIAN RHYTHM SLEEP DISORDER
     Dosage: 150 MILLIGRAM;
     Route: 048
     Dates: start: 20100505

REACTIONS (4)
  - HEADACHE [None]
  - NAUSEA [None]
  - FEELING JITTERY [None]
  - NERVOUSNESS [None]
